FAERS Safety Report 19021027 (Version 2)
Quarter: 2021Q2

REPORT INFORMATION
  Report Type: Spontaneous
  Country: US (occurrence: US)
  Receive Date: 20210317
  Receipt Date: 20210420
  Transmission Date: 20210717
  Serious: No
  Sender: FDA-Public Use
  Company Number: US-AIMMUNE THERAPEUTICS, INC.-2021AIMT00119

PATIENT

DRUGS (4)
  1. BENADRYL A [Suspect]
     Active Substance: DIPHENHYDRAMINE HYDROCHLORIDE
     Dosage: 25 MG, TWICE
     Dates: start: 20210303
  2. PREDNISOLONE. [Suspect]
     Active Substance: PREDNISOLONE
     Dosage: 30 MG, TWICE
     Dates: start: 20210303
  3. BENADRYL A [Suspect]
     Active Substance: DIPHENHYDRAMINE HYDROCHLORIDE
     Dosage: 12.5 MG, ONCE
     Dates: start: 20210303
  4. PALFORZIA [Suspect]
     Active Substance: PEANUT
     Indication: FOOD ALLERGY
     Dosage: 3 MG, 1X/DAY
     Route: 048
     Dates: start: 20210302

REACTIONS (3)
  - Intentional dose omission [Recovered/Resolved]
  - Oropharyngeal discomfort [Recovered/Resolved]
  - Anxiety [Not Recovered/Not Resolved]

NARRATIVE: CASE EVENT DATE: 20210303
